FAERS Safety Report 24876155 (Version 1)
Quarter: 2025Q1

REPORT INFORMATION
  Report Type: Spontaneous
  Country: RO (occurrence: RO)
  Receive Date: 20250123
  Receipt Date: 20250123
  Transmission Date: 20250409
  Serious: Yes (Other)
  Sender: AMGEN
  Company Number: RO-AMGEN-ROUSP2025010057

PATIENT
  Age: 40 Year
  Sex: Female

DRUGS (8)
  1. PANITUMUMAB [Suspect]
     Active Substance: PANITUMUMAB
     Indication: Colorectal cancer metastatic
     Route: 065
  2. PANITUMUMAB [Suspect]
     Active Substance: PANITUMUMAB
     Route: 065
  3. LEUCOVORIN CALCIUM [Concomitant]
     Active Substance: LEUCOVORIN CALCIUM
     Indication: Colorectal cancer metastatic
  4. LEUCOVORIN CALCIUM [Concomitant]
     Active Substance: LEUCOVORIN CALCIUM
  5. FLUOROURACIL [Concomitant]
     Active Substance: FLUOROURACIL
     Indication: Colorectal cancer metastatic
  6. FLUOROURACIL [Concomitant]
     Active Substance: FLUOROURACIL
  7. OXALIPLATIN [Concomitant]
     Active Substance: OXALIPLATIN
     Indication: Colorectal cancer metastatic
  8. OXALIPLATIN [Concomitant]
     Active Substance: OXALIPLATIN

REACTIONS (2)
  - Colorectal cancer metastatic [Unknown]
  - Skin toxicity [Unknown]
